FAERS Safety Report 7377791-3 (Version None)
Quarter: 2011Q1

REPORT INFORMATION
  Report Type: 
  Country: None (occurrence: None)
  Receive Date: 20110328
  Receipt Date: 20110318
  Transmission Date: 20110831
  Serious: Yes (Other)
  Sender: FDA-Public Use
  Company Number: US-AMGEN-USASP2011015150

PATIENT
  Age: 28 Year
  Sex: Female

DRUGS (1)
  1. ENBREL [Suspect]
     Indication: RHEUMATOID ARTHRITIS
     Dates: start: 20100714

REACTIONS (9)
  - ABNORMAL LOSS OF WEIGHT [None]
  - PYREXIA [None]
  - DEPRESSION [None]
  - INJECTION SITE PAIN [None]
  - VIRAL INFECTION [None]
  - INJECTION SITE SWELLING [None]
  - INJECTION SITE HAEMATOMA [None]
  - INCORRECT DOSE ADMINISTERED [None]
  - RHEUMATOID ARTHRITIS [None]
